FAERS Safety Report 24618917 (Version 1)
Quarter: 2024Q4

REPORT INFORMATION
  Report Type: Spontaneous
  Country: GB (occurrence: GB)
  Receive Date: 20241114
  Receipt Date: 20241114
  Transmission Date: 20250115
  Serious: Yes (Other)
  Sender: TEVA
  Company Number: None

PATIENT
  Age: 73 Year
  Sex: Male

DRUGS (3)
  1. SILDENAFIL [Suspect]
     Active Substance: SILDENAFIL
     Indication: Pulmonary hypertension
     Dosage: TIME INTERVAL: 0.33333333 DAYS
     Route: 065
     Dates: start: 20241008
  2. RAMIPRIL [Concomitant]
     Active Substance: RAMIPRIL
  3. FUROSEMIDE [Concomitant]
     Active Substance: FUROSEMIDE

REACTIONS (3)
  - Arthralgia [Unknown]
  - Pain in extremity [Unknown]
  - Spinal pain [Unknown]

NARRATIVE: CASE EVENT DATE: 20241101
